FAERS Safety Report 7687183 (Version 2)
Quarter: 2020Q3

REPORT INFORMATION
  Report Type: Spontaneous
  Country: TR (occurrence: TR)
  Receive Date: 20101130
  Receipt Date: 20200805
  Transmission Date: 20201103
  Serious: Yes (Other)
  Sender: FDA-Public Use
  Company Number: PHHY2010TR78261

PATIENT
  Age: 53 Year
  Sex: Female

DRUGS (3)
  1. OCTREOTIDE. [Suspect]
     Active Substance: OCTREOTIDE
     Dosage: 50 UG, QH
     Route: 042
  2. OCTREOTIDE. [Suspect]
     Active Substance: OCTREOTIDE
     Indication: PRODUCT USED FOR UNKNOWN INDICATION
     Dosage: 50 UG
     Route: 040
  3. OCTREOTIDE. [Suspect]
     Active Substance: OCTREOTIDE

REACTIONS (5)
  - Atrioventricular block complete [Recovered/Resolved]
  - Blood pressure decreased [Recovering/Resolving]
  - Bradycardia [Recovering/Resolving]
  - Hypotension [Recovered/Resolved]
  - Haematemesis [Recovered/Resolved]
